FAERS Safety Report 9025312 (Version 3)
Quarter: 2013Q2

REPORT INFORMATION
  Report Type: Spontaneous
  Country: US (occurrence: US)
  Receive Date: 20130122
  Receipt Date: 20130607
  Transmission Date: 20140414
  Serious: Yes (Hospitalization, Other)
  Sender: FDA-Public Use
  Company Number: US-009507513-1301USA009744

PATIENT
  Sex: Female

DRUGS (22)
  1. FOSAMAX [Suspect]
     Indication: OSTEOPENIA
     Dosage: 70 MG, QW
     Route: 048
     Dates: start: 20021227, end: 20090109
  2. ALENDRONATE SODIUM [Suspect]
     Indication: OSTEOPENIA
     Dosage: 70 MG, QW
     Route: 048
     Dates: start: 20100323, end: 20101212
  3. ACTONEL [Concomitant]
     Indication: OSTEOPENIA
     Dosage: UNK
     Route: 048
     Dates: start: 200404
  4. STRONTIUM (UNSPECIFIED) [Concomitant]
     Dosage: 250 MG, UNK
     Route: 048
     Dates: start: 1972
  5. CYSTEINE [Concomitant]
     Dosage: 500 MG, QD
     Route: 048
     Dates: start: 1972
  6. GRAPE SEEDS [Concomitant]
     Dosage: 120 MG, QD
     Dates: start: 1972
  7. NATTOKINASE [Concomitant]
     Dosage: 100 MG, QD
     Route: 048
     Dates: start: 1972
  8. MENATETRENONE [Concomitant]
     Dosage: 100 DF, QD
     Route: 048
     Dates: start: 1972
  9. FOLIC ACID [Concomitant]
     Dosage: 800 DF, QD
     Route: 048
     Dates: start: 1972
  10. ACACIA (+) ALGAE (+) ALOE VERA (+) AMERICAN GINSENG (+) BITTER ORANGE [Concomitant]
     Dosage: 685 MG, QD
     Route: 048
     Dates: start: 1972
  11. PYRIDOXINE [Concomitant]
     Dosage: 500 MG, UNK
     Route: 048
     Dates: start: 1972
  12. RESVERATROL [Concomitant]
     Dosage: 25/100/50/25 MG, QD
  13. VITAMIN A [Concomitant]
     Dosage: 10000 UNK, UNK
     Dates: start: 1972
  14. CHOLECALCIFEROL [Concomitant]
     Dosage: 5000 IU, UNK
     Dates: start: 1972
  15. VITAMIN E [Concomitant]
     Dosage: 250 MG, QD
     Dates: start: 1972
  16. PHOSPHATIDYL SERINE [Concomitant]
     Dosage: 100 MG, UNK
     Dates: start: 1972
  17. UBIDECARENONE [Concomitant]
     Dosage: 60 MG, QD
     Dates: start: 1972
  18. OMEGA-3 [Concomitant]
     Dosage: 750 (500EPA/25DHA) MG, QD
     Dates: start: 1972
  19. SELENIUM (UNSPECIFIED) [Concomitant]
     Dosage: 100 DF, QD
     Dates: start: 1972
  20. NIACIN [Concomitant]
     Dosage: 500 MG, QD
     Dates: start: 1972
  21. LEVOCARNITINE [Concomitant]
     Dosage: UNK
     Dates: start: 1972
  22. CALCIUM (UNSPECIFIED) [Concomitant]
     Dosage: CA 300 MG/MG 300MG D3 1000IU, QD
     Dates: start: 1972

REACTIONS (14)
  - Femur fracture [Unknown]
  - Open reduction of fracture [Unknown]
  - Cataract operation [Unknown]
  - Fall [Unknown]
  - Necrosis [Unknown]
  - Left ventricular hypertrophy [Unknown]
  - QRS axis abnormal [Unknown]
  - Mitral valve incompetence [Unknown]
  - Aortic valve sclerosis [Unknown]
  - Blood sodium decreased [Unknown]
  - Venous insufficiency [Not Recovered/Not Resolved]
  - Sleep apnoea syndrome [Unknown]
  - Adjustment disorder [Not Recovered/Not Resolved]
  - Anxiety [Unknown]
